FAERS Safety Report 16048404 (Version 1)
Quarter: 2019Q1

REPORT INFORMATION
  Report Type: Spontaneous
  Country: US (occurrence: US)
  Receive Date: 20190307
  Receipt Date: 20190307
  Transmission Date: 20190418
  Serious: Yes (Death, Hospitalization, Other)
  Sender: FDA-Public Use
  Company Number: US-TEVA-2019-US-1018892

PATIENT
  Age: 80 Year
  Sex: Female

DRUGS (1)
  1. CEFALEXIN CAPSULES [Suspect]
     Active Substance: CEPHALEXIN
     Dosage: 1000 MILLIGRAM DAILY;

REACTIONS (6)
  - Dehydration [Unknown]
  - Wrong product administered [Unknown]
  - Clostridium difficile infection [Unknown]
  - Fall [Unknown]
  - Thrombocytopenia [Fatal]
  - Product dispensing error [Unknown]

NARRATIVE: CASE EVENT DATE: 20180108
